FAERS Safety Report 15459222 (Version 1)
Quarter: 2018Q4

REPORT INFORMATION
  Report Type: Spontaneous
  Country: JP (occurrence: JP)
  Receive Date: 20181003
  Receipt Date: 20181003
  Transmission Date: 20190204
  Serious: Yes (Other)
  Sender: FDA-Public Use
  Company Number: JP-PFIZER INC-2018290083

PATIENT
  Age: 66 Year
  Sex: Male

DRUGS (7)
  1. BENIDIPINE [Concomitant]
     Active Substance: BENIDIPINE
     Indication: HYPERTENSION
     Dosage: 8 MG, DAILY
     Route: 048
     Dates: start: 20160309
  2. INLYTA [Suspect]
     Active Substance: AXITINIB
     Indication: METASTATIC RENAL CELL CARCINOMA
     Dosage: 5 MG, 2X/DAY
     Route: 048
     Dates: start: 20180213, end: 20180423
  3. BENIDIPINE [Concomitant]
     Active Substance: BENIDIPINE
     Dosage: 4 MG, DAILY
     Route: 048
     Dates: start: 20180226, end: 20180429
  4. ALLOPURINOL. [Concomitant]
     Active Substance: ALLOPURINOL
     Dosage: 100 MG, DAILY
     Route: 048
     Dates: start: 20161101
  5. CANDESARTAN. [Concomitant]
     Active Substance: CANDESARTAN
     Indication: HYPERTENSION
     Dosage: 8 MG, DAILY
     Route: 048
     Dates: start: 20180501, end: 20180906
  6. BAYASPIRIN [Concomitant]
     Active Substance: ASPIRIN
     Dosage: 100 MG, DAILY
     Route: 048
     Dates: start: 20081007
  7. ATORVASTATIN [Concomitant]
     Active Substance: ATORVASTATIN
     Dosage: 10 MG, DAILY
     Route: 048
     Dates: start: 20081007

REACTIONS (1)
  - Pneumonia [Recovering/Resolving]

NARRATIVE: CASE EVENT DATE: 20180413
